FAERS Safety Report 19208151 (Version 1)
Quarter: 2021Q2

REPORT INFORMATION
  Report Type: Report from Study
  Country: US (occurrence: US)
  Receive Date: 20210503
  Receipt Date: 20210503
  Transmission Date: 20210717
  Serious: Yes (Other)
  Sender: FDA-Public Use
  Company Number: US-MYLANLABS-2021M1025776

PATIENT
  Age: 77 Year
  Sex: Female

DRUGS (2)
  1. SULPHAMETHOXAZOLE/TRIMETHOPRIM [Suspect]
     Active Substance: SULFAMETHOXAZOLE\TRIMETHOPRIM
     Dosage: BID DOSE: 800MG?160MG; CHRONIC ANTIMICROBIAL SUPPRESSION
     Route: 048
  2. SULPHAMETHOXAZOLE/TRIMETHOPRIM [Suspect]
     Active Substance: SULFAMETHOXAZOLE\TRIMETHOPRIM
     Indication: SERRATIA INFECTION
     Dosage: INITIAL DOSE NOT STATED
     Route: 048

REACTIONS (1)
  - Gastrointestinal haemorrhage [Unknown]
